FAERS Safety Report 19733458 (Version 1)
Quarter: 2021Q3

REPORT INFORMATION
  Report Type: Spontaneous
  Country: DE (occurrence: DE)
  Receive Date: 20210823
  Receipt Date: 20210823
  Transmission Date: 20211014
  Serious: Yes (Other)
  Sender: FDA-Public Use
  Company Number: DE-AUROBINDO-AUR-APL-2018-046279

PATIENT
  Age: 38 Year
  Sex: Female

DRUGS (12)
  1. LEVETIRACETAM. [Suspect]
     Active Substance: LEVETIRACETAM
     Dosage: 1500 MILLIGRAM, ONCE A DAY, (0?11.5 GESTATIONAL WEEK)
     Route: 048
     Dates: start: 20171002
  2. NEPRESOL (HYDRALAZINE HYDROCHLORIDE) [Suspect]
     Active Substance: HYDRALAZINE HYDROCHLORIDE
     Dosage: 25 MILLIGRAM, ONCE A DAY,  (4.4?11.5 GESTATIONAL WEEK)
     Route: 048
     Dates: start: 20171103
  3. CYTOTEC [Concomitant]
     Active Substance: MISOPROSTOL
     Indication: ABORTION INDUCED
     Dosage: UNK (11?11.5 GESTATIONAL WEEK) ()
     Route: 065
  4. PAROXETINE. [Suspect]
     Active Substance: PAROXETINE
     Dosage: 30 MILLIGRAM, ONCE A DAY,0?4.4 GESTATIONAL WEEK)
     Route: 048
     Dates: start: 20171103
  5. NEPRESOL (HYDRALAZINE HYDROCHLORIDE) [Suspect]
     Active Substance: HYDRALAZINE HYDROCHLORIDE
     Indication: HYPERTENSION
     Dosage: 25 MILLIGRAM, ONCE A DAY,  (4.4?11.5 GESTATIONAL WEEK)
     Route: 048
     Dates: start: 20171223
  6. L?THYROXIN [Concomitant]
     Active Substance: LEVOTHYROXINE SODIUM
     Indication: AUTOIMMUNE THYROIDITIS
     Dosage: UNK (0?11.5 GESTATIONAL WEEK) ()
     Route: 048
  7. LEVETIRACETAM. [Suspect]
     Active Substance: LEVETIRACETAM
     Indication: EPILEPSY
     Dosage: 1500 MILLIGRAM, ONCE A DAY, (0?11.5 GESTATIONAL WEEK)
     Route: 048
     Dates: start: 20171223
  8. PAROXETINE. [Suspect]
     Active Substance: PAROXETINE
     Indication: DEPRESSION
     Dosage: 30 MILLIGRAM, ONCE A DAY, 0?4.4 GESTATIONAL WEEK)
     Route: 048
     Dates: start: 20171002
  9. CANDESARTAN. [Suspect]
     Active Substance: CANDESARTAN
     Dosage: 16 MILLIGRAM, ONCE A DAY, (0?4.4 GESTATIONAL WEEK)
     Route: 048
     Dates: start: 20171103
  10. ESCITALOPRAM [Suspect]
     Active Substance: ESCITALOPRAM OXALATE
     Indication: DEPRESSION
     Dosage: 220 MILLIGRAM, ONCE A DAY, 4.4?11.5 GESTATIONAL WEEK
     Route: 048
     Dates: start: 20171103
  11. ESCITALOPRAM [Suspect]
     Active Substance: ESCITALOPRAM OXALATE
     Dosage: 220 MILLIGRAM, ONCE A DAY, 4.4?11.5 GESTATIONAL WEEK
     Route: 048
     Dates: start: 20171223
  12. CANDESARTAN. [Suspect]
     Active Substance: CANDESARTAN
     Indication: HYPERTENSION
     Dosage: 16 MILLIGRAM, ONCE A DAY ((0?4.4 GESTATIONAL WEEK)
     Route: 048
     Dates: start: 20171002

REACTIONS (4)
  - Foetal exposure during pregnancy [Unknown]
  - Maternal exposure during pregnancy [Unknown]
  - Off label use [Unknown]
  - Abortion induced [Unknown]

NARRATIVE: CASE EVENT DATE: 201710
